FAERS Safety Report 6259689-7 (Version None)
Quarter: 2009Q3

REPORT INFORMATION
  Report Type: 
  Country: None (occurrence: None)
  Receive Date: 20090708
  Receipt Date: 20090702
  Transmission Date: 20100115
  Serious: Yes (Other)
  Sender: FDA-Public Use
  Company Number: JP-BAYER-200912247BYL

PATIENT
  Age: 75 Year
  Sex: Female

DRUGS (1)
  1. CIPROXAN [Suspect]
     Indication: CYSTITIS
     Dosage: TOTAL DAILY DOSE: 300 MG  UNIT DOSE: 100 MG
     Route: 048
     Dates: start: 20090620, end: 20090624

REACTIONS (3)
  - BEDRIDDEN [None]
  - CORNEAL EPITHELIAL MICROCYSTS [None]
  - ORAL MUCOSA EROSION [None]
